FAERS Safety Report 8270692-8 (Version None)
Quarter: 2012Q2

REPORT INFORMATION
  Report Type: 
  Country: None (occurrence: None)
  Receive Date: 20120410
  Receipt Date: 20120403
  Transmission Date: 20120825
  Serious: Yes (Death, Other)
  Sender: FDA-Public Use
  Company Number: US-ELI_LILLY_AND_COMPANY-US201204001132

PATIENT
  Age: 49 Year
  Sex: Male

DRUGS (5)
  1. CARBOPLATIN [Concomitant]
     Dosage: UNK, UNKNOWN
     Dates: start: 20110401
  2. CARBOPLATIN [Concomitant]
     Dosage: UNK, UNKNOWN
     Dates: start: 20110701
  3. TAXOL [Concomitant]
     Dosage: UNK, UNKNOWN
     Dates: start: 20110701
  4. ALIMTA [Suspect]
     Dosage: UNK, UNKNOWN
     Dates: start: 20110401
  5. AVASTIN [Concomitant]
     Dosage: UNK, UNKNOWN
     Dates: start: 20110401

REACTIONS (2)
  - DEATH [None]
  - NEOPLASM PROGRESSION [None]
